FAERS Safety Report 18369635 (Version 2)
Quarter: 2022Q4

REPORT INFORMATION
  Report Type: Spontaneous
  Country: US (occurrence: US)
  Receive Date: 20201012
  Receipt Date: 20221012
  Transmission Date: 20230113
  Serious: No
  Sender: FDA-Public Use
  Company Number: US-CELLTRION INC.-2019US027059

PATIENT

DRUGS (4)
  1. INFLIXIMAB [Suspect]
     Active Substance: INFLIXIMAB
     Indication: Juvenile idiopathic arthritis
     Dosage: 31 MONTHS ON TNFI UNTIL PSORIASIS DIAGNOSIS
     Dates: start: 200901, end: 201707
  2. METHOTREXATE [Concomitant]
     Active Substance: METHOTREXATE
     Dosage: UNK, (SYSTEMIC THERAPY)
  3. MOMETASONE [Concomitant]
     Active Substance: MOMETASONE
     Route: 061
  4. FLUOCINOLONE [Concomitant]
     Active Substance: FLUOCINOLONE
     Dosage: UNK (SOLUTION)
     Route: 061

REACTIONS (5)
  - Psoriasis [Recovering/Resolving]
  - Alopecia [Unknown]
  - Paradoxical drug reaction [Recovering/Resolving]
  - Product use in unapproved indication [Unknown]
  - Product use issue [Unknown]
